FAERS Safety Report 16462976 (Version 2)
Quarter: 2025Q4

REPORT INFORMATION
  Report Type: Spontaneous
  Country: US (occurrence: US)
  Receive Date: 20190621
  Receipt Date: 20251128
  Transmission Date: 20260118
  Serious: Yes (Life-Threatening)
  Sender: MERCK SHARP & DOHME LLC
  Company Number: US-009507513-1906USA007505

PATIENT
  Age: 31 Year
  Sex: Female

DRUGS (7)
  1. BRIDION [Suspect]
     Active Substance: SUGAMMADEX SODIUM
     Indication: Neuromuscular blockade reversal
     Dosage: TIME INTERVAL: TOTAL: DOSE DESCRIPTION : 4 MILLIGRAM/KILOGRAM, ONCE?DAILY DOSE : 4 MILLIGRAM/KILO...
     Route: 042
  2. ROCURONIUM BROMIDE [Suspect]
     Active Substance: ROCURONIUM BROMIDE
     Indication: Neuromuscular blockade
     Dosage: TIME INTERVAL: TOTAL: DOSE DESCRIPTION : 40 MG, SINGLE DOSE?DAILY DOSE : 40 MILLIGRAM
     Route: 042
  3. DESFLURANE [Suspect]
     Active Substance: DESFLURANE
     Indication: Maintenance of anaesthesia
     Dosage: DOSE DESCRIPTION : INHALED
     Route: 055
  4. MIDAZOLAM [Concomitant]
     Active Substance: MIDAZOLAM
     Indication: Premedication
     Dosage: DOSE DESCRIPTION : UNK
  5. FENTANYL [Concomitant]
     Active Substance: FENTANYL
     Indication: Induction of anaesthesia
     Dosage: DOSE DESCRIPTION : UNK
     Route: 042
  6. LIDOCAINE [Concomitant]
     Active Substance: LIDOCAINE
     Indication: Induction of anaesthesia
     Dosage: DOSE DESCRIPTION : UNK
     Route: 042
  7. PROPOFOL [Concomitant]
     Active Substance: PROPOFOL
     Indication: Induction of anaesthesia
     Dosage: DOSE DESCRIPTION : UNK
     Route: 042

REACTIONS (1)
  - Bronchospasm [Recovered/Resolved]
